FAERS Safety Report 14312675 (Version 1)
Quarter: 2017Q4

REPORT INFORMATION
  Report Type: Spontaneous
  Country: US (occurrence: US)
  Receive Date: 20171221
  Receipt Date: 20171221
  Transmission Date: 20180321
  Serious: No
  Sender: FDA-Public Use
  Company Number: US-BAYER-2017-242145

PATIENT
  Age: 93 Year
  Sex: Female
  Weight: 59 kg

DRUGS (5)
  1. EYE DROPS [Concomitant]
     Active Substance: UNSPECIFIED INGREDIENT
     Dosage: UNK
  2. ALEVE [Suspect]
     Active Substance: NAPROXEN SODIUM
     Indication: PAIN
     Dosage: 2 DF, BID
     Route: 048
  3. LOTEMAX [Concomitant]
     Active Substance: LOTEPREDNOL ETABONATE
     Dosage: UNK
  4. CLINDAMYCIN. [Concomitant]
     Active Substance: CLINDAMYCIN
     Dosage: 500 MG, UNK
  5. CIMAGEN [Concomitant]
     Dosage: UNK

REACTIONS (11)
  - Suffocation feeling [Unknown]
  - Incorrect dose administered [Unknown]
  - Intentional overdose [Unknown]
  - Product use issue [None]
  - Mobility decreased [Unknown]
  - Vision blurred [Unknown]
  - Drug effect incomplete [Unknown]
  - Muscle disorder [Unknown]
  - Visual impairment [Unknown]
  - Salivary hypersecretion [Unknown]
  - Lacrimation increased [Unknown]

NARRATIVE: CASE EVENT DATE: 20171128
